FAERS Safety Report 20605136 (Version 3)
Quarter: 2022Q2

REPORT INFORMATION
  Report Type: Spontaneous
  Country: FR (occurrence: FR)
  Receive Date: 20220317
  Receipt Date: 20220405
  Transmission Date: 20220721
  Serious: Yes (Hospitalization)
  Sender: FDA-Public Use
  Company Number: FR-AFSSAPS-MP20221263

PATIENT
  Sex: Male
  Weight: 3.78 kg

DRUGS (3)
  1. BROMAZEPAM [Suspect]
     Active Substance: BROMAZEPAM
     Indication: Anxiety
     Dosage: 3 MILLIGRAM
     Route: 064
     Dates: end: 20211117
  2. LAMOTRIGINE [Suspect]
     Active Substance: LAMOTRIGINE
     Indication: Epilepsy
     Dosage: 200 MILLIGRAM, TWO TIMES A DAY
     Route: 064
     Dates: end: 20211117
  3. ESLICARBAZEPINE ACETATE [Suspect]
     Active Substance: ESLICARBAZEPINE ACETATE
     Indication: Epilepsy
     Dosage: 1600 MILLIGRAM, ONCE A DAY
     Route: 064
     Dates: end: 20211117

REACTIONS (3)
  - Hypertonia [Not Recovered/Not Resolved]
  - Fontanelle bulging [Unknown]
  - Foetal exposure during pregnancy [Unknown]

NARRATIVE: CASE EVENT DATE: 20211117
